FAERS Safety Report 5127738-5 (Version None)
Quarter: 2006Q4

REPORT INFORMATION
  Report Type: 
  Country: None (occurrence: None)
  Receive Date: 20061016
  Receipt Date: 20061013
  Transmission Date: 20070319
  Serious: Yes (Disabling)
  Sender: FDA-Public Use
  Company Number: GB-GLAXOSMITHKLINE-B0442103A

PATIENT
  Age: 68 Year
  Sex: Male
  Weight: 66.5 kg

DRUGS (4)
  1. AMOXICILLIN [Suspect]
     Route: 048
     Dates: start: 20060627, end: 20060630
  2. GLICLAZIDE [Concomitant]
     Route: 048
  3. LANTUS [Concomitant]
     Route: 058
     Dates: start: 20060815
  4. METFORMIN HCL [Concomitant]
     Route: 048

REACTIONS (2)
  - ECZEMA [None]
  - LICHEN PLANUS [None]
